FAERS Safety Report 24712038 (Version 2)
Quarter: 2025Q1

REPORT INFORMATION
  Report Type: Spontaneous
  Country: US (occurrence: US)
  Receive Date: 20241209
  Receipt Date: 20250110
  Transmission Date: 20250409
  Serious: No
  Sender: JOHNSON AND JOHNSON
  Company Number: US-JNJFOC-20241213842

PATIENT
  Age: 40 Year
  Sex: Female
  Weight: 79.4 kg

DRUGS (2)
  1. SPRAVATO [Suspect]
     Active Substance: ESKETAMINE
     Indication: Major depression
     Route: 045
     Dates: start: 20240918
  2. SPRAVATO [Suspect]
     Active Substance: ESKETAMINE
     Route: 045
     Dates: start: 20241127

REACTIONS (8)
  - Dissociation [Recovered/Resolved]
  - Micturition urgency [Unknown]
  - Brain fog [Unknown]
  - Headache [Recovered/Resolved]
  - Hypoaesthesia teeth [Recovered/Resolved]
  - Memory impairment [Not Recovered/Not Resolved]
  - Disorientation [Unknown]
  - Derealisation [Unknown]

NARRATIVE: CASE EVENT DATE: 20240101
